FAERS Safety Report 5131266-0 (Version None)
Quarter: 2006Q4

REPORT INFORMATION
  Report Type: 
  Country: None (occurrence: None)
  Receive Date: 20061020
  Receipt Date: 20060718
  Transmission Date: 20070319
  Serious: Yes (Other)
  Sender: FDA-Public Use
  Company Number: PHBS2006NL10738

PATIENT
  Sex: Female
  Weight: 90 kg

DRUGS (10)
  1. LEPONEX [Suspect]
     Indication: SCHIZOPHRENIA, PARANOID TYPE
     Dosage: 400 MG/D
     Route: 048
     Dates: start: 20050901
  2. CYCLOPHOSPHAMIDE + DOXORUBICIN + 5-FU [Suspect]
     Indication: BREAST CANCER
     Route: 065
  3. DOCETAXEL [Suspect]
     Indication: BREAST CANCER
     Route: 065
  4. CAPECITABINE [Suspect]
     Indication: BREAST CANCER
     Route: 065
  5. PANTOPRAZOLE SODIUM [Concomitant]
     Dosage: 20 MG, QD
     Route: 048
  6. METOCLOPRAMIDE [Concomitant]
     Dosage: 10 MG, TID
     Route: 048
  7. GRANISETRON [Concomitant]
     Dosage: 1 MG, BID
  8. MOVILON [Concomitant]
     Dosage: 1 DF, QD
  9. DEXAMETHASONE TAB [Concomitant]
  10. IBUPROFEN [Concomitant]
     Dosage: 200 MG, QID

REACTIONS (2)
  - DRUG INTERACTION [None]
  - DRUG LEVEL DECREASED [None]
